FAERS Safety Report 7635857-4 (Version None)
Quarter: 2011Q3

REPORT INFORMATION
  Report Type: 
  Country: None (occurrence: None)
  Receive Date: 20110726
  Receipt Date: 20110715
  Transmission Date: 20111222
  Serious: Yes (Other)
  Sender: FDA-Public Use
  Company Number: US-JNJFOC-20110707156

PATIENT
  Age: 3 Decade
  Sex: Female

DRUGS (1)
  1. REMICADE [Suspect]
     Indication: CROHN'S DISEASE
     Dosage: SEVERAL MONTHS
     Route: 042

REACTIONS (2)
  - PARAESTHESIA [None]
  - INFUSION RELATED REACTION [None]
